FAERS Safety Report 7982710-2 (Version None)
Quarter: 2011Q4

REPORT INFORMATION
  Report Type: 
  Country: None (occurrence: None)
  Receive Date: 20111215
  Receipt Date: 20111212
  Transmission Date: 20120403
  Serious: Yes (Other)
  Sender: FDA-Public Use
  Company Number: US-ROCHE-794015

PATIENT
  Sex: Female
  Weight: 59.02 kg

DRUGS (4)
  1. ACCUTANE [Suspect]
  2. ACCUTANE [Suspect]
     Indication: PRODUCT USED FOR UNKNOWN INDICATION
     Dosage: RECEIVED APPROX FOR NINE MONTHS
     Route: 048
  3. MINOCIN [Concomitant]
     Route: 048
     Dates: start: 20000315
  4. ACCUTANE [Suspect]
     Dosage: AGAIN FOR NINE MONTHS IN 1989

REACTIONS (16)
  - INFLAMMATORY BOWEL DISEASE [None]
  - HYPERTENSION [None]
  - HAEMORRHOIDS [None]
  - COLITIS ULCERATIVE [None]
  - GASTROOESOPHAGEAL REFLUX DISEASE [None]
  - DIVERTICULUM [None]
  - OSTEOPENIA [None]
  - IRRITABLE BOWEL SYNDROME [None]
  - INSOMNIA [None]
  - ANAEMIA [None]
  - ANAL FISTULA [None]
  - BLOOD TRIGLYCERIDES INCREASED [None]
  - DRY SKIN [None]
  - DEPRESSION [None]
  - SUICIDAL IDEATION [None]
  - BLOOD CHOLESTEROL INCREASED [None]
